FAERS Safety Report 24698764 (Version 8)
Quarter: 2025Q1

REPORT INFORMATION
  Report Type: Report from Study
  Country: US (occurrence: US)
  Receive Date: 20241205
  Receipt Date: 20250223
  Transmission Date: 20250408
  Serious: Yes (Death, Other)
  Sender: ABBVIE
  Company Number: US-ABBVIE-6031937

PATIENT
  Age: 66 Year
  Sex: Female
  Weight: 54 kg

DRUGS (2)
  1. DUOPA [Suspect]
     Active Substance: CARBIDOPA\LEVODOPA
     Indication: Parkinson^s disease
     Route: 050
     Dates: start: 202403, end: 20241202
  2. DUOPA [Suspect]
     Active Substance: CARBIDOPA\LEVODOPA

REACTIONS (6)
  - Death [Fatal]
  - Tremor [Recovered/Resolved]
  - Mouth haemorrhage [Unknown]
  - Feeling cold [Unknown]
  - Musculoskeletal stiffness [Unknown]
  - Suicide attempt [Unknown]

NARRATIVE: CASE EVENT DATE: 20240601
